FAERS Safety Report 11859966 (Version 2)
Quarter: 2016Q1

REPORT INFORMATION
  Report Type: Spontaneous
  Country: US (occurrence: US)
  Receive Date: 20151222
  Receipt Date: 20160126
  Transmission Date: 20160526
  Serious: No
  Sender: FDA-Public Use
  Company Number: US-PFIZER INC-2015406961

PATIENT
  Age: 34 Year
  Sex: Male
  Weight: 47.63 kg

DRUGS (1)
  1. FLECTOR [Suspect]
     Active Substance: DICLOFENAC EPOLAMINE
     Indication: PAIN MANAGEMENT
     Dosage: 1 DF, UP TO 12 HOURS
     Route: 061
     Dates: start: 2015

REACTIONS (4)
  - Drug ineffective [Unknown]
  - Wound [Not Recovered/Not Resolved]
  - Product quality issue [Unknown]
  - Poor quality drug administered [Unknown]

NARRATIVE: CASE EVENT DATE: 201511
